FAERS Safety Report 25416849 (Version 1)
Quarter: 2025Q2

REPORT INFORMATION
  Report Type: Other
  Country: GB (occurrence: GB)
  Receive Date: 20250610
  Receipt Date: 20250610
  Transmission Date: 20250716
  Serious: Yes (Other)
  Sender: MACLEODS
  Company Number: GB-MHRA-TPP22264645C20801192YC1748015613365

PATIENT

DRUGS (12)
  1. CLOPIDOGREL [Suspect]
     Active Substance: CLOPIDOGREL BISULFATE
     Indication: Ill-defined disorder
     Route: 065
     Dates: start: 20250523
  2. DAPAGLIFLOZIN [Concomitant]
     Active Substance: DAPAGLIFLOZIN
     Indication: Diabetes mellitus
     Dosage: ONE TABLET TO BE TAKEN ONCE  A DAY  FOR DIABETES
     Route: 065
     Dates: start: 20250221
  3. PERINDOPRIL ERBUMINE [Concomitant]
     Active Substance: PERINDOPRIL ERBUMINE
     Indication: Blood pressure measurement
     Dosage: TAKE ONE DAILY FOR BP
     Route: 065
     Dates: start: 20250221
  4. AMLODIPINE [Concomitant]
     Active Substance: AMLODIPINE BESYLATE
     Dosage: TAKE ONE DAILY TO LOWER BLOOD PRESSURE
     Route: 065
     Dates: start: 20250523
  5. ASPIRIN [Concomitant]
     Active Substance: ASPIRIN
     Indication: Ill-defined disorder
     Dosage: TAKE ONE DAILY, DISSOLVED IN WATER TO REDUCE RI...
     Route: 065
     Dates: start: 20250523
  6. ATORVASTATIN [Concomitant]
     Active Substance: ATORVASTATIN
     Dosage: TAKE ONE DAILY TO LOWER CHOLESTEROL
     Route: 065
     Dates: start: 20250523
  7. CARBOMER 980 [Concomitant]
     Active Substance: CARBOMER HOMOPOLYMER TYPE C (ALLYL PENTAERYTHRITOL CROSSLINKED)
     Indication: Ill-defined disorder
     Dates: start: 20250523
  8. IBUPROFEN [Concomitant]
     Active Substance: IBUPROFEN
     Indication: Pain
     Dosage: APPLY THREE TIMES A DAY IF NEEDED FOR PAIN
     Route: 065
     Dates: start: 20250523
  9. LANSOPRAZOLE [Concomitant]
     Active Substance: LANSOPRAZOLE
     Indication: Ill-defined disorder
     Dosage: TAKE ONE EACH MORNING
     Route: 065
     Dates: start: 20250523
  10. Macrogol compound [Concomitant]
     Indication: Ill-defined disorder
     Route: 065
     Dates: start: 20250523
  11. ACETAMINOPHEN [Concomitant]
     Active Substance: ACETAMINOPHEN
     Indication: Ill-defined disorder
     Dosage: TAKE ONE TO TWO TABLETS UP TO FOUR TIMES A DAY ...
     Route: 065
     Dates: start: 20250523
  12. SENNA [Concomitant]
     Active Substance: SENNOSIDES
     Indication: Ill-defined disorder
     Dosage: TAKE ONE OR TWO TABLETS AT NIGHT TO PREVENT / T...
     Route: 065
     Dates: start: 20250523

REACTIONS (1)
  - Therapeutic response decreased [Unknown]

NARRATIVE: CASE EVENT DATE: 20250523
